FAERS Safety Report 23651167 (Version 2)
Quarter: 2025Q1

REPORT INFORMATION
  Report Type: Spontaneous
  Country: US (occurrence: US)
  Receive Date: 20240320
  Receipt Date: 20250317
  Transmission Date: 20250408
  Serious: No
  Sender: SANOFI AVENTIS
  Company Number: US-SA-SAC20240315000601

PATIENT
  Age: 20 Year
  Sex: Female

DRUGS (3)
  1. DUPIXENT [Suspect]
     Active Substance: DUPILUMAB
     Indication: Post inflammatory pigmentation change
     Dosage: 300 MG, QOW
     Route: 058
     Dates: start: 202312
  2. DUPIXENT [Suspect]
     Active Substance: DUPILUMAB
     Indication: Pruritus
  3. DUPIXENT [Suspect]
     Active Substance: DUPILUMAB
     Indication: Dyshidrotic eczema

REACTIONS (9)
  - Pruritus [Unknown]
  - Skin burning sensation [Unknown]
  - Pain of skin [Unknown]
  - Dyshidrotic eczema [Unknown]
  - Condition aggravated [Unknown]
  - Post inflammatory pigmentation change [Unknown]
  - Condition aggravated [Unknown]
  - Therapeutic response unexpected [Unknown]
  - Product use in unapproved indication [Unknown]

NARRATIVE: CASE EVENT DATE: 20231201
